FAERS Safety Report 16468117 (Version 2)
Quarter: 2019Q3

REPORT INFORMATION
  Report Type: Report from Study
  Country: MX (occurrence: MX)
  Receive Date: 20190624
  Receipt Date: 20190801
  Transmission Date: 20191004
  Serious: Yes (Life-Threatening, Hospitalization)
  Sender: FDA-Public Use
  Company Number: PHHY2019MX144550

PATIENT
  Age: 10 Year
  Sex: Female

DRUGS (4)
  1. REVOLADE [Suspect]
     Active Substance: ELTROMBOPAG
     Indication: BONE MARROW FAILURE
     Dosage: 1 DF (50 MG), BID , STOPPED ON BEGINNING OF JUL 2019
     Route: 048
     Dates: start: 201906, end: 201907
  2. REVOLADE [Suspect]
     Active Substance: ELTROMBOPAG
     Dosage: 1 DF (50 MG), BID , STOPPED 20 DAYS AGO
     Route: 048
     Dates: start: 201907
  3. REVOLADE [Suspect]
     Active Substance: ELTROMBOPAG
     Indication: APLASIA
     Dosage: 1 DF (50 MG), QD
     Route: 048
     Dates: end: 201906
  4. REVOLADE [Suspect]
     Active Substance: ELTROMBOPAG
     Dosage: 1.5 DF (50 MG), BID
     Route: 048
     Dates: start: 201907, end: 201907

REACTIONS (7)
  - Anger [Not Recovered/Not Resolved]
  - Wrong technique in product usage process [Unknown]
  - Feeling abnormal [Not Recovered/Not Resolved]
  - Platelet count decreased [Recovered/Resolved]
  - Weight decreased [Not Recovered/Not Resolved]
  - Depressed mood [Not Recovered/Not Resolved]
  - Product use in unapproved indication [Unknown]

NARRATIVE: CASE EVENT DATE: 201906
